FAERS Safety Report 4744790-7 (Version None)
Quarter: 2005Q3

REPORT INFORMATION
  Report Type: 
  Country: None (occurrence: None)
  Receive Date: 20050811
  Receipt Date: 20050711
  Transmission Date: 20060218
  Serious: No
  Sender: FDA-Public Use
  Company Number: 200416157BCC

PATIENT
  Age: 41 Year
  Sex: Male
  Weight: 70.3075 kg

DRUGS (4)
  1. ALEVE [Suspect]
     Indication: PAIN
     Dosage: IRR, ORAL
     Route: 048
     Dates: end: 20041220
  2. BLOOD PRESSURE MEDICATION (NOS) (CARDIOVASCULAR SYSTEM DRUGS) [Suspect]
  3. ANTIBIOTIC [Concomitant]
  4. PAIN MEDICATION [Concomitant]

REACTIONS (20)
  - ANOREXIA [None]
  - ASTHENIA [None]
  - BLOOD GLUCOSE INCREASED [None]
  - BLOOD PRESSURE INCREASED [None]
  - CREATINE PHOSPHOKINASE DECREASED [None]
  - DECREASED ACTIVITY [None]
  - DIZZINESS [None]
  - DYSSTASIA [None]
  - ERYTHEMA [None]
  - GASTROOESOPHAGEAL REFLUX DISEASE [None]
  - HEADACHE [None]
  - HYPERHIDROSIS [None]
  - HYPOAESTHESIA [None]
  - NAUSEA [None]
  - NON-CARDIAC CHEST PAIN [None]
  - OCULAR HYPERAEMIA [None]
  - SYNCOPE [None]
  - TOOTH ABSCESS [None]
  - TREMOR [None]
  - VOMITING [None]
